FAERS Safety Report 12827413 (Version 1)
Quarter: 2016Q4

REPORT INFORMATION
  Report Type: Report from Study
  Country: US (occurrence: US)
  Receive Date: 20161006
  Receipt Date: 20161006
  Transmission Date: 20170207
  Serious: Yes (Hospitalization)
  Sender: FDA-Public Use
  Company Number: US-GILEAD-2016-0236343

PATIENT
  Age: 61 Year
  Sex: Female

DRUGS (1)
  1. AMBRISENTAN [Suspect]
     Active Substance: AMBRISENTAN
     Indication: PRODUCT USED FOR UNKNOWN INDICATION
     Dosage: 10 MG, QD
     Route: 065
     Dates: start: 20160803

REACTIONS (5)
  - Influenza [Unknown]
  - Hypervigilance [Unknown]
  - Unevaluable event [Unknown]
  - Flushing [Not Recovered/Not Resolved]
  - Mobility decreased [Not Recovered/Not Resolved]
